FAERS Safety Report 4853449-7 (Version None)
Quarter: 2005Q4

REPORT INFORMATION
  Report Type: 
  Country: None (occurrence: None)
  Receive Date: 20051214
  Receipt Date: 20051207
  Transmission Date: 20060501
  Serious: Yes (Other)
  Sender: FDA-Public Use
  Company Number: US-MERCK-0512USA01438

PATIENT
  Sex: Female

DRUGS (2)
  1. VIOXX [Suspect]
     Route: 048
     Dates: start: 20000101
  2. BEXTRA [Suspect]
     Route: 065
     Dates: start: 20040901

REACTIONS (1)
  - MYOCARDIAL INFARCTION [None]
